FAERS Safety Report 9678514 (Version 3)
Quarter: 2014Q2

REPORT INFORMATION
  Report Type: Spontaneous
  Country: US (occurrence: US)
  Receive Date: 20131108
  Receipt Date: 20140613
  Transmission Date: 20141212
  Serious: Yes (Hospitalization)
  Sender: FDA-Public Use
  Company Number: US-BAXTER-2013BAX043715

PATIENT
  Sex: Female

DRUGS (4)
  1. DIANEAL LOW CALCIUM [Suspect]
     Indication: RENAL FAILURE CHRONIC
     Route: 033
     Dates: start: 20110721
  2. DIANEAL LOW CALCIUM [Suspect]
     Route: 033
     Dates: start: 20110701
  3. DIANEAL LOW CALCIUM [Suspect]
     Indication: RENAL FAILURE CHRONIC
     Route: 033
     Dates: start: 20110721
  4. DIANEAL LOW CALCIUM [Suspect]
     Route: 033
     Dates: start: 20110701

REACTIONS (3)
  - Uterine cancer [Not Recovered/Not Resolved]
  - Mobility decreased [Recovered/Resolved]
  - White blood cell count decreased [Not Recovered/Not Resolved]
